FAERS Safety Report 9070970 (Version 1)
Quarter: 2013Q1

REPORT INFORMATION
  Report Type: Report from Study
  Country: JP (occurrence: JP)
  Receive Date: 20130129
  Receipt Date: 20130129
  Transmission Date: 20140127
  Serious: Yes (Other)
  Sender: FDA-Public Use
  Company Number: JP-GLAXOSMITHKLINE-B0860456A

PATIENT
  Age: 27 None
  Sex: Female
  Weight: 50 kg

DRUGS (11)
  1. LAMICTAL [Suspect]
     Indication: PARTIAL SEIZURES
     Dosage: 25MG PER DAY
     Route: 048
     Dates: start: 20100204, end: 20100217
  2. LAMICTAL [Suspect]
     Indication: PARTIAL SEIZURES
     Dosage: 25MG PER DAY
     Route: 048
     Dates: start: 20100218, end: 20100303
  3. LAMICTAL [Suspect]
     Indication: PARTIAL SEIZURES
     Dosage: 50MG PER DAY
     Route: 048
     Dates: start: 20100304, end: 20100414
  4. LAMICTAL [Suspect]
     Indication: PARTIAL SEIZURES
     Dosage: 37.5MG TWICE PER DAY
     Route: 048
     Dates: start: 20100415, end: 20100831
  5. LAMICTAL [Suspect]
     Indication: PARTIAL SEIZURES
     Dosage: 50MG TWICE PER DAY
     Route: 048
     Dates: start: 20100901, end: 20101126
  6. LAMICTAL [Suspect]
     Indication: PARTIAL SEIZURES
     Dosage: 62.5MG TWICE PER DAY
     Route: 048
     Dates: start: 20101127, end: 20101127
  7. LAMICTAL [Suspect]
     Indication: PARTIAL SEIZURES
     Dosage: 50MG TWICE PER DAY
     Route: 048
     Dates: start: 20101128
  8. DEPAKENE [Concomitant]
     Indication: PARTIAL SEIZURES
     Route: 048
  9. TEGRETOL [Concomitant]
     Indication: PARTIAL SEIZURES
     Route: 048
  10. GABAPEN [Concomitant]
     Indication: PARTIAL SEIZURES
     Route: 048
  11. PANVITAN [Concomitant]
     Route: 048

REACTIONS (2)
  - Encephalitis [Recovered/Resolved]
  - Agitation [Recovered/Resolved]
